FAERS Safety Report 19186419 (Version 3)
Quarter: 2021Q2

REPORT INFORMATION
  Report Type: Other
  Country: ES (occurrence: ES)
  Receive Date: 20210427
  Receipt Date: 20210520
  Transmission Date: 20210717
  Serious: Yes (Hospitalization)
  Sender: FDA-Public Use
  Company Number: ES-ROCHE-2817610

PATIENT
  Age: 47 Year
  Sex: Female

DRUGS (5)
  1. LEXATIN (BROMAZEPAM) [Concomitant]
     Active Substance: BROMAZEPAM
     Dosage: 0?0?1
  2. ENTRECTINIB [Suspect]
     Active Substance: ENTRECTINIB
     Route: 048
     Dates: start: 20210303, end: 20210413
  3. VIMPAT [Concomitant]
     Active Substance: LACOSAMIDE
     Dosage: TWICE A DAY
  4. ENTRECTINIB [Suspect]
     Active Substance: ENTRECTINIB
     Indication: GANGLIONEUROMA
     Route: 065
     Dates: start: 20210226
  5. ENTRECTINIB [Suspect]
     Active Substance: ENTRECTINIB
     Route: 065

REACTIONS (1)
  - Cardiotoxicity [Recovered/Resolved]

NARRATIVE: CASE EVENT DATE: 20210413
